FAERS Safety Report 6499821-3 (Version None)
Quarter: 2009Q4

REPORT INFORMATION
  Report Type: 
  Country: None (occurrence: None)
  Receive Date: 20091214
  Receipt Date: 20091202
  Transmission Date: 20100525
  Serious: Yes (Hospitalization)
  Sender: FDA-Public Use
  Company Number: 2009029420

PATIENT
  Age: 61 Year
  Sex: Male
  Weight: 84 kg

DRUGS (17)
  1. TRISENOX [Suspect]
     Indication: ACUTE MYELOID LEUKAEMIA
     Dosage: (0.3 MG/KG, DAYS 1-5 QW), INTRAVEOUS DRIP
     Route: 041
     Dates: start: 20091109
  2. TRISENOX [Suspect]
     Indication: ACUTE MYELOID LEUKAEMIA
     Dosage: (0.3 MG/KG, DAYS 1-5 QW), INTRAVEOUS DRIP
     Route: 041
     Dates: start: 20091119
  3. TRISENOX [Suspect]
     Indication: ACUTE MYELOID LEUKAEMIA
     Dosage: (0.3 MG/KG, DAYS 1-5 QW), INTRAVEOUS DRIP
     Route: 041
     Dates: start: 20091123
  4. DECITABINE (DECITABINE) [Suspect]
     Indication: ACUTE MYELOID LEUKAEMIA
     Dosage: (20 MG/M2,DAYS 1-5 QW), INTRAVENOUS
     Route: 042
     Dates: start: 20091109, end: 20091113
  5. COMPAZINE [Concomitant]
  6. DILAUDID [Concomitant]
  7. MS CONTIN [Concomitant]
  8. NEXIUM [Concomitant]
  9. FLOMAX (MORNIFLUMATE) [Concomitant]
  10. FOLIC ACID [Concomitant]
  11. LORATADINE [Concomitant]
  12. VALTREX [Concomitant]
  13. ZOLOFT [Concomitant]
  14. POTASSIUM CHLORIDE [Concomitant]
  15. MEPRON (METAMIZOLE SODIUM) [Concomitant]
  16. ASCORBIC ACID [Suspect]
     Indication: ACUTE MYELOID LEUKAEMIA
     Dosage: 1000 MG  DAYS 1-5 QW INTRAVENOUS
     Route: 042
     Dates: start: 20091119
  17. ASCORBIC ACID [Suspect]
     Indication: ACUTE MYELOID LEUKAEMIA
     Dosage: 1000 MG  DAYS 1-5 QW INTRAVENOUS
     Route: 042
     Dates: start: 20091123

REACTIONS (8)
  - ACUTE MYELOID LEUKAEMIA [None]
  - BACK PAIN [None]
  - CELLULITIS [None]
  - DISEASE PROGRESSION [None]
  - HYPOTENSION [None]
  - MALAISE [None]
  - PANCYTOPENIA [None]
  - PSEUDOMONAS INFECTION [None]
